FAERS Safety Report 4351236-X (Version None)
Quarter: 2004Q2

REPORT INFORMATION
  Report Type: 
  Country: None (occurrence: None)
  Receive Date: 20040428
  Receipt Date: 20040413
  Transmission Date: 20050107
  Serious: Yes (Hospitalization, Other)
  Sender: FDA-Public Use
  Company Number: USA040463720

PATIENT
  Age: 66 Year
  Sex: Female

DRUGS (7)
  1. FORTEO [Suspect]
     Indication: OSTEOPOROSIS
     Dates: start: 20031216, end: 20040406
  2. CELEBREX [Concomitant]
  3. PREDNISOLONE [Concomitant]
  4. CATAFLAM (DICLOFENAC SODIUM) [Concomitant]
  5. ACETAMINOPHEN [Concomitant]
  6. ULTRACET [Concomitant]
  7. FOSAMAX [Concomitant]

REACTIONS (9)
  - ABDOMINAL DISCOMFORT [None]
  - CHEST DISCOMFORT [None]
  - DEHYDRATION [None]
  - HIP FRACTURE [None]
  - PAIN [None]
  - PHARMACEUTICAL PRODUCT COMPLAINT [None]
  - POST PROCEDURAL PAIN [None]
  - TENSION [None]
  - WEIGHT DECREASED [None]
